FAERS Safety Report 5210566-X (Version None)
Quarter: 2006Q4

REPORT INFORMATION
  Report Type: 
  Country: None (occurrence: None)
  Receive Date: 20061106
  Receipt Date: 20060413
  Transmission Date: 20070319
  Serious: Yes (Other)
  Sender: FDA-Public Use
  Company Number: US-JNJFOC-20060403672

PATIENT
  Age: 51 Year
  Sex: Female

DRUGS (6)
  1. MOTRIN [Suspect]
     Indication: BONE PAIN
     Dosage: ^HEAVY INTAKE^
     Dates: end: 20060319
  2. MOTRIN [Suspect]
     Indication: RADICULAR PAIN
     Dosage: ^HEAVY INTAKE^
     Dates: end: 20060319
  3. BETASERON [Suspect]
     Indication: MULTIPLE SCLEROSIS
     Dosage: 8 MIU, 1 IN 2 DAY, SUBCUTANEOUS
     Route: 058
     Dates: start: 20050922
  4. ANTIHYPERTENSIVES (ANTIHYPERTENSIVES) [Concomitant]
  5. PROTON PUMP INHIBITORS (ALL OTHER THERAPEUTIC PRODUCTS) [Concomitant]
  6. DARVOCET-N 50 [Concomitant]

REACTIONS (2)
  - ABDOMINAL PAIN UPPER [None]
  - HAEMATEMESIS [None]
